FAERS Safety Report 8026102-9 (Version None)
Quarter: 2012Q1

REPORT INFORMATION
  Report Type: 
  Country: None (occurrence: None)
  Receive Date: 20120105
  Receipt Date: 20110622
  Transmission Date: 20120608
  Serious: No
  Sender: FDA-Public Use
  Company Number: US-ABBOTT-11P-163-0734797-00

PATIENT
  Sex: Female
  Weight: 98.972 kg

DRUGS (3)
  1. SYNTHROID [Suspect]
     Indication: HYPOTHYROIDISM
     Route: 048
     Dates: start: 20101001
  2. SELENIUM [Concomitant]
     Indication: MALABSORPTION
     Route: 048
  3. SYNTHROID [Suspect]
     Route: 048
     Dates: start: 19920101, end: 20101001

REACTIONS (8)
  - CHEST PAIN [None]
  - PSYCHOMOTOR HYPERACTIVITY [None]
  - INSOMNIA [None]
  - PRODUCT QUALITY ISSUE [None]
  - HEART RATE INCREASED [None]
  - INCREASED APPETITE [None]
  - THYROID DISORDER [None]
  - MOOD ALTERED [None]
